FAERS Safety Report 10560369 (Version 2)
Quarter: 2014Q4

REPORT INFORMATION
  Report Type: Spontaneous
  Country: ES (occurrence: HR)
  Receive Date: 20141103
  Receipt Date: 20141121
  Transmission Date: 20150529
  Serious: Yes (Hospitalization)
  Sender: FDA-Public Use
  Company Number: HR-FRI-1000072000

PATIENT
  Age: 61 Year
  Sex: Female

DRUGS (3)
  1. ACLIDINIUM [Suspect]
     Active Substance: ACLIDINIUM BROMIDE
     Indication: CHRONIC OBSTRUCTIVE PULMONARY DISEASE
     Dosage: 2X1 INHALATION
     Route: 055
     Dates: start: 20141003, end: 20141004
  2. IRUZID 20/12.5 [Concomitant]
     Indication: HYPERTENSION
     Dosage: 1 X 1 IN THE MORNING
  3. CONCOR [Concomitant]
     Active Substance: BISOPROLOL FUMARATE
     Indication: HYPERTENSION
     Dosage: 1X1 IN THE MORNING

REACTIONS (1)
  - Transient ischaemic attack [Recovered/Resolved]
